FAERS Safety Report 25113670 (Version 1)
Quarter: 2025Q1

REPORT INFORMATION
  Report Type: Spontaneous
  Country: US (occurrence: None)
  Receive Date: 20250322
  Receipt Date: 20250322
  Transmission Date: 20250409
  Serious: Yes (Disabling)
  Sender: FDA-CTU
  Company Number: None

PATIENT
  Age: 34 Year
  Sex: Male
  Weight: 63 kg

DRUGS (14)
  1. LEVOFLOXACIN [Suspect]
     Active Substance: LEVOFLOXACIN
     Indication: Prostatomegaly
     Dates: start: 20240201, end: 20240214
  2. LEVOFLOXACIN [Suspect]
     Active Substance: LEVOFLOXACIN
     Indication: Blood urine present
  3. LEVOFLOXACIN [Suspect]
     Active Substance: LEVOFLOXACIN
     Indication: Prostatitis
  4. NALTREXONE [Concomitant]
     Active Substance: NALTREXONE
  5. UNSPECIFIED INGREDIENT [Concomitant]
     Active Substance: UNSPECIFIED INGREDIENT
  6. COENZYME Q10 [Concomitant]
     Active Substance: DIETARY SUPPLEMENT\UBIDECARENONE
  7. Algae Omega Oil [Concomitant]
  8. vitamins K2 [Concomitant]
  9. VITAMIN D3 [Concomitant]
     Active Substance: CHOLECALCIFEROL
  10. B12 [Concomitant]
  11. Acetyl L-Cartinine [Concomitant]
  12. ALPHA LIPOIC ACID [Concomitant]
     Active Substance: .ALPHA.-LIPOIC ACID
  13. MAGNESIUM [Concomitant]
     Active Substance: MAGNESIUM
  14. PALMIDROL [Concomitant]
     Active Substance: PALMIDROL

REACTIONS (8)
  - Product communication issue [None]
  - Adverse event [None]
  - Product label issue [None]
  - Neurological symptom [None]
  - Discomfort [None]
  - Skin irritation [None]
  - Burning sensation [None]
  - Paraesthesia [None]

NARRATIVE: CASE EVENT DATE: 20240201
